FAERS Safety Report 23664199 (Version 1)
Quarter: 2024Q1

REPORT INFORMATION
  Report Type: Spontaneous
  Country: CN (occurrence: None)
  Receive Date: 20240322
  Receipt Date: 20240322
  Transmission Date: 20240410
  Serious: Yes (Other)
  Sender: FDA-Public Use
  Company Number: 2024A064843

PATIENT
  Age: 52 Year
  Sex: Female

DRUGS (7)
  1. OSIMERTINIB [Suspect]
     Active Substance: OSIMERTINIB
     Indication: Lung adenocarcinoma
     Dosage: DOSE UNKNOWN
     Route: 048
  2. OSIMERTINIB [Suspect]
     Active Substance: OSIMERTINIB
     Indication: Lung adenocarcinoma
     Dosage: DOSE UNKNOWN
     Route: 048
  3. BEVACIZUMAB [Concomitant]
     Active Substance: BEVACIZUMAB
     Dates: start: 202006
  4. PEMETREXED [Concomitant]
     Active Substance: PEMETREXED
  5. CARBOPLATIN [Concomitant]
     Active Substance: CARBOPLATIN
  6. ERLOTINIB [Concomitant]
     Active Substance: ERLOTINIB
  7. NEDAPLATIN [Concomitant]
     Active Substance: NEDAPLATIN

REACTIONS (2)
  - Malignant neoplasm progression [Unknown]
  - Drug resistance [Unknown]

NARRATIVE: CASE EVENT DATE: 20200401
